FAERS Safety Report 4733536-4 (Version None)
Quarter: 2005Q3

REPORT INFORMATION
  Report Type: 
  Country: None (occurrence: None)
  Receive Date: 20050729
  Receipt Date: 20050713
  Transmission Date: 20060218
  Serious: Yes (Death)
  Sender: FDA-Public Use
  Company Number: ZANA001129

PATIENT
  Age: 61 Year
  Sex: Female

DRUGS (12)
  1. ZANAFLEX [Suspect]
     Indication: MUSCLE SPASTICITY
     Dosage: 4 MG QDAY PO
     Route: 048
     Dates: start: 20031014, end: 20031015
  2. ZANAFLEX [Suspect]
     Indication: MUSCLE SPASTICITY
     Dosage: 4 MG QDAY PO
     Route: 048
     Dates: end: 20040124
  3. ZANAFLEX [Suspect]
     Indication: ALLERGENIC DESENSITISATION PROCEDURE
     Dosage: 0.01 MG TID PO
     Route: 048
     Dates: start: 20031218
  4. ZANAFLEX [Suspect]
     Indication: MUSCLE SPASTICITY
     Dosage: 0.01 MG TID PO
     Route: 048
     Dates: start: 20031218
  5. VANCOCYN [Concomitant]
  6. FLAGYL [Concomitant]
  7. TYLENOL (CAPLET) [Concomitant]
  8. NEURONTIN [Concomitant]
  9. ATIVAN [Concomitant]
  10. VALIUM [Concomitant]
  11. DIOVOL [Concomitant]
  12. LOVENOX [Concomitant]

REACTIONS (4)
  - MYOCARDIAL INFARCTION [None]
  - RASH [None]
  - RESPIRATORY TRACT INFECTION [None]
  - VENTRICULAR FIBRILLATION [None]
